FAERS Safety Report 18921860 (Version 1)
Quarter: 2021Q1

REPORT INFORMATION
  Report Type: Spontaneous
  Country: US (occurrence: US)
  Receive Date: 20210219
  Receipt Date: 20210219
  Transmission Date: 20210420
  Serious: Yes (Other)
  Sender: FDA-Public Use
  Company Number: None

PATIENT
  Age: 64 Year
  Sex: Female
  Weight: 89.1 kg

DRUGS (6)
  1. VITAMIN C AND E [Concomitant]
     Active Substance: .ALPHA.-TOCOPHEROL\ASCORBIC ACID
  2. IBERSARTAN?HCTZ [Concomitant]
     Active Substance: HYDROCHLOROTHIAZIDE\IRBESARTAN
  3. OZEMPIC [Concomitant]
     Active Substance: SEMAGLUTIDE
  4. ACITRETIN 10MG CAPSULES [Suspect]
     Active Substance: ACITRETIN
     Indication: PSORIASIS
     Dosage: ?          QUANTITY:3 CAPSULE(S);?
     Route: 048
  5. TALTZ [Concomitant]
     Active Substance: IXEKIZUMAB
  6. METFORMIN [Concomitant]
     Active Substance: METFORMIN HYDROCHLORIDE

REACTIONS (1)
  - Alopecia [None]

NARRATIVE: CASE EVENT DATE: 20210115
